FAERS Safety Report 18183487 (Version 1)
Quarter: 2020Q3

REPORT INFORMATION
  Report Type: Report from Study
  Country: US (occurrence: US)
  Receive Date: 20200822
  Receipt Date: 20200822
  Transmission Date: 20201103
  Serious: Yes (Hospitalization)
  Sender: FDA-Public Use
  Company Number: US-ACTELION-A-NJ2020-208093

PATIENT
  Sex: Female
  Weight: 94.79 kg

DRUGS (2)
  1. ELIQUIS [Concomitant]
     Active Substance: APIXABAN
  2. VELETRI [Suspect]
     Active Substance: EPOPROSTENOL
     Indication: PULMONARY HYPERTENSION
     Dosage: 24 NG/KG, PER MIN
     Route: 042

REACTIONS (6)
  - Hospitalisation [Unknown]
  - Hypotension [Unknown]
  - Decreased appetite [Unknown]
  - Tremor [Unknown]
  - Weight increased [Unknown]
  - Confusional state [Unknown]
